FAERS Safety Report 4680033-0 (Version None)
Quarter: 2005Q2

REPORT INFORMATION
  Report Type: 
  Country: None (occurrence: None)
  Receive Date: 20050602
  Receipt Date: 20050509
  Transmission Date: 20051028
  Serious: Yes (Hospitalization)
  Sender: FDA-Public Use
  Company Number: AU-GLAXOSMITHKLINE-B0380967A

PATIENT
  Age: 63 Year
  Sex: Female

DRUGS (12)
  1. ZYBAN [Suspect]
     Indication: DRUG USE FOR UNKNOWN INDICATION
     Dosage: 150MG PER DAY
     Route: 048
     Dates: start: 20050413
  2. ENDEP [Concomitant]
     Indication: DRUG USE FOR UNKNOWN INDICATION
     Dosage: 50MG VARIABLE DOSE
     Route: 065
     Dates: end: 20050515
  3. ANDROCUR [Concomitant]
     Dosage: 50MG PER DAY
     Route: 065
  4. BRICANYL TURBOHALER [Concomitant]
     Dosage: 2PUFF FOUR TIMES PER DAY
     Route: 055
  5. DIAMICRON [Concomitant]
     Dosage: 80MG TWICE PER DAY
     Route: 065
  6. DITROPAN [Concomitant]
     Dosage: 5MG TWICE PER DAY
     Route: 065
  7. EPILIM [Concomitant]
     Dosage: 500MG THREE TIMES PER DAY
     Route: 065
  8. NAPROSYN CR [Concomitant]
     Dosage: 1000MG SEE DOSAGE TEXT
     Route: 065
  9. ACETAMINOPHEN W/ CODEINE [Concomitant]
     Route: 065
  10. PROGYNOVA [Concomitant]
     Dosage: 2MG TWICE PER DAY
     Route: 065
  11. SERETIDE [Concomitant]
     Dosage: 1PUFF TWICE PER DAY
     Route: 055
  12. TEMAZEPAM [Concomitant]
     Dosage: 10MG AT NIGHT
     Route: 065

REACTIONS (8)
  - CONFUSIONAL STATE [None]
  - DISORIENTATION [None]
  - DIZZINESS [None]
  - FALL [None]
  - MALAISE [None]
  - PNEUMONIA [None]
  - SEROTONIN SYNDROME [None]
  - SLEEP DISORDER [None]
